FAERS Safety Report 6730039-2 (Version None)
Quarter: 2010Q2

REPORT INFORMATION
  Report Type: 
  Country: None (occurrence: None)
  Receive Date: 20100518
  Receipt Date: 20100506
  Transmission Date: 20101027
  Serious: Yes (Other)
  Sender: FDA-Public Use
  Company Number: JP-PFIZER INC-2010060939

PATIENT
  Age: 75 Year
  Sex: Male
  Weight: 59 kg

DRUGS (8)
  1. CAMPTOSAR [Suspect]
     Indication: COLON CANCER
     Dosage: 240 MG, UNK
     Route: 041
     Dates: start: 20090201
  2. KYTRIL [Concomitant]
     Indication: PREMEDICATION
     Dosage: UNK
     Route: 041
     Dates: start: 20090201
  3. DECADRON #1 [Concomitant]
     Indication: PREMEDICATION
     Dosage: UNK
     Route: 041
     Dates: start: 20090201
  4. ELIETEN [Concomitant]
     Indication: PREMEDICATION
     Dosage: UNK
     Dates: start: 20090201
  5. HYDROXYZINE PAMOATE [Concomitant]
     Route: 048
  6. BIOFERMIN R [Concomitant]
     Dosage: UNK,3X/DAY
     Route: 048
  7. LOPERAMIDE HYDROCHLORIDE [Concomitant]
     Route: 048
  8. CODEINE PHOSPHATE [Concomitant]
     Route: 048

REACTIONS (1)
  - PERITONITIS [None]
